FAERS Safety Report 17394476 (Version 1)
Quarter: 2020Q1

REPORT INFORMATION
  Report Type: Spontaneous
  Country: NL (occurrence: NL)
  Receive Date: 20200210
  Receipt Date: 20200210
  Transmission Date: 20200409
  Serious: Yes (Other)
  Sender: FDA-Public Use
  Company Number: NL-AUROBINDO-AUR-APL-2020-005891

PATIENT
  Sex: Female
  Weight: 83 kg

DRUGS (2)
  1. INSULIN [Concomitant]
     Active Substance: INSULIN NOS
     Indication: PRODUCT USED FOR UNKNOWN INDICATION
     Dosage: UNK
     Route: 065
  2. PIPERACILLIN/TAZOBACTAM POWDER FOR SOLUTION FOR INJECTION/INFUSION4.5G [Suspect]
     Active Substance: PIPERACILLIN SODIUM\TAZOBACTAM SODIUM
     Indication: PYREXIA
     Dosage: 1 DOSAGE FORM, 3 TIMES A DAY (4.500 MG IN NACL 0,9% 100 ML INFUUS, 3DD GEDURENDE 30 MIN)
     Route: 065
     Dates: start: 20191222, end: 20191227

REACTIONS (1)
  - Hypokalaemia [Recovered/Resolved]
